FAERS Safety Report 6984917-X (Version None)
Quarter: 2010Q3

REPORT INFORMATION
  Report Type: 
  Country: None (occurrence: None)
  Receive Date: 20100915
  Receipt Date: 20100908
  Transmission Date: 20110219
  Serious: Yes (Other)
  Sender: FDA-Public Use
  Company Number: US-SANOFI-AVENTIS-2010SA054544

PATIENT
  Age: 70 Year
  Sex: Male
  Weight: 56.7 kg

DRUGS (2)
  1. LANTUS [Suspect]
     Dosage: DOSE:15 UNIT(S)
     Route: 058
  2. OPTICLICK [Suspect]
     Route: 058

REACTIONS (4)
  - HYPERGLYCAEMIA [None]
  - METASTASES TO BONE [None]
  - OESOPHAGEAL CARCINOMA [None]
  - WEIGHT DECREASED [None]
